FAERS Safety Report 7169369-1 (Version None)
Quarter: 2010Q4

REPORT INFORMATION
  Report Type: 
  Country: None (occurrence: None)
  Receive Date: 20101216
  Receipt Date: 20100108
  Transmission Date: 20110411
  Serious: No
  Sender: FDA-Public Use
  Company Number: US-AMGEN-KDL385068

PATIENT

DRUGS (2)
  1. ENBREL [Suspect]
     Indication: RHEUMATOID ARTHRITIS
     Dosage: 50 MG, QWK
     Route: 058
  2. ENBREL [Suspect]
     Indication: OSTEOARTHRITIS

REACTIONS (5)
  - ARTHRALGIA [None]
  - BONE PAIN [None]
  - DRUG INEFFECTIVE [None]
  - MUSCULOSKELETAL CHEST PAIN [None]
  - PAIN IN EXTREMITY [None]
